FAERS Safety Report 16212989 (Version 1)
Quarter: 2019Q2

REPORT INFORMATION
  Report Type: Spontaneous
  Country: IT (occurrence: IT)
  Receive Date: 20190418
  Receipt Date: 20190418
  Transmission Date: 20190711
  Serious: Yes (Hospitalization, Other)
  Sender: FDA-Public Use
  Company Number: IT-MYLANLABS-2019M1035766

PATIENT
  Age: 67 Year
  Sex: Female

DRUGS (1)
  1. DICLOFENAC [Suspect]
     Active Substance: DICLOFENAC
     Indication: ARTHRALGIA
     Dosage: SHE HAD BEEN TAKING (SELF ADMINISTRATION) DICLOFENAC, AND ADR OCCURRED DUE TO ITS OVERUSE
     Route: 065

REACTIONS (4)
  - Self-medication [Recovered/Resolved]
  - Ectropion [Recovered/Resolved]
  - Intentional product misuse [Recovered/Resolved]
  - Necrotising fasciitis [Recovered/Resolved]
